FAERS Safety Report 9262515 (Version 2)
Quarter: 2013Q2

REPORT INFORMATION
  Report Type: Spontaneous
  Country: GB (occurrence: GB)
  Receive Date: 20130430
  Receipt Date: 20130521
  Transmission Date: 20140414
  Serious: Yes (Other)
  Sender: FDA-Public Use
  Company Number: GB-MICRO LABS LIMITED-BB2013-GB-00246

PATIENT
  Sex: Male

DRUGS (4)
  1. LOSARTAN [Suspect]
     Indication: AORTIC ANEURYSM
     Route: 065
  2. ACETYLSALICYLIC ACID [Suspect]
     Indication: PRODUCT USED FOR UNKNOWN INDICATION
     Route: 065
  3. BENDROFLUMETHIAZIDE [Suspect]
     Indication: PRODUCT USED FOR UNKNOWN INDICATION
     Route: 065
  4. BISOPROLOL [Suspect]
     Indication: HEART RATE IRREGULAR
     Route: 065

REACTIONS (7)
  - Cardiac failure [Unknown]
  - Transient ischaemic attack [Unknown]
  - Aneurysm [Unknown]
  - Dyspnoea [Unknown]
  - Blood pressure diastolic increased [Unknown]
  - Abdominal distension [Unknown]
  - Drug interaction [Unknown]
